FAERS Safety Report 9523553 (Version 1)
Quarter: 2013Q3

REPORT INFORMATION
  Report Type: Spontaneous
  Country: DE (occurrence: DE)
  Receive Date: 20130913
  Receipt Date: 20130913
  Transmission Date: 20140515
  Serious: Yes (Other)
  Sender: FDA-Public Use
  Company Number: DE-BAXTER-2013BAX035042

PATIENT
  Age: 34 Year
  Sex: Female

DRUGS (6)
  1. ENDOXAN 1G [Suspect]
     Indication: INVASIVE DUCTAL BREAST CARCINOMA
     Route: 065
     Dates: start: 201008, end: 201008
  2. ENDOXAN 1G [Suspect]
     Route: 065
  3. ENDOXAN 1G [Suspect]
     Route: 065
  4. DOCETAXEL [Suspect]
     Indication: INVASIVE DUCTAL BREAST CARCINOMA
     Route: 065
     Dates: start: 201008, end: 201008
  5. DOCETAXEL [Suspect]
     Route: 065
  6. DOCETAXEL [Suspect]
     Route: 065

REACTIONS (5)
  - Exposure during pregnancy [Recovered/Resolved]
  - Placental insufficiency [Recovered/Resolved]
  - Oligohydramnios [Recovered/Resolved]
  - HELLP syndrome [Unknown]
  - Premature delivery [Recovered/Resolved]
